FAERS Safety Report 24111126 (Version 3)
Quarter: 2024Q3

REPORT INFORMATION
  Report Type: Spontaneous
  Country: US (occurrence: US)
  Receive Date: 20240718
  Receipt Date: 20240731
  Transmission Date: 20241017
  Serious: Yes (Other)
  Sender: ALCON
  Company Number: US-ALCON LABORATORIES-ALC2024US003078

PATIENT
  Age: 71 Year
  Sex: Female

DRUGS (1)
  1. SYSTANE COMPLETE PF [Suspect]
     Active Substance: PROPYLENE GLYCOL
     Indication: Product used for unknown indication
     Dosage: ONE DROP IN EACH EYE ONCE A DAY
     Route: 047

REACTIONS (3)
  - Bell^s palsy [Recovering/Resolving]
  - Eye discharge [Recovered/Resolved]
  - Ocular hyperaemia [Recovered/Resolved]
